FAERS Safety Report 15317550 (Version 1)
Quarter: 2018Q3

REPORT INFORMATION
  Report Type: Spontaneous
  Country: DE (occurrence: DE)
  Receive Date: 20180824
  Receipt Date: 20180824
  Transmission Date: 20181010
  Serious: Yes (Hospitalization)
  Sender: FDA-Public Use
  Company Number: PHHY2018DE076027

PATIENT
  Age: 79 Year
  Sex: Female
  Weight: 61.2 kg

DRUGS (18)
  1. PACLITAXEL. [Suspect]
     Active Substance: PACLITAXEL
     Indication: PRODUCT USED FOR UNKNOWN INDICATION
     Dosage: 285 MG, Q3W
     Route: 042
     Dates: start: 20150812, end: 20150812
  2. CARBOPLATIN. [Suspect]
     Active Substance: CARBOPLATIN
     Dosage: 330 MG, Q3W
     Route: 042
     Dates: start: 20150902, end: 20150902
  3. CARBOPLATIN. [Suspect]
     Active Substance: CARBOPLATIN
     Dosage: 305 MG, Q3W
     Route: 042
     Dates: start: 20151014, end: 20151014
  4. CARBOPLATIN. [Suspect]
     Active Substance: CARBOPLATIN
     Dosage: 320 MG, Q3W
     Route: 042
     Dates: start: 20151126, end: 20151126
  5. PACLITAXEL. [Suspect]
     Active Substance: PACLITAXEL
     Dosage: 280 MG, Q3W
     Route: 042
     Dates: start: 20150923, end: 20150923
  6. CARBOPLATIN. [Suspect]
     Active Substance: CARBOPLATIN
     Indication: OVARIAN CANCER
     Dosage: 295 MG, Q3W
     Route: 042
     Dates: start: 20150812, end: 20150812
  7. PACLITAXEL. [Suspect]
     Active Substance: PACLITAXEL
     Dosage: 275 MG, Q3W
     Route: 042
     Dates: start: 20151014, end: 20151014
  8. PACLITAXEL. [Suspect]
     Active Substance: PACLITAXEL
     Dosage: 275 MG, Q3W
     Route: 042
     Dates: start: 20151126, end: 20151126
  9. CARBOPLATIN. [Suspect]
     Active Substance: CARBOPLATIN
     Dosage: 305 MG, Q3W
     Route: 042
     Dates: start: 20151104, end: 20151104
  10. CARBOPLATIN. [Suspect]
     Active Substance: CARBOPLATIN
     Dosage: 330 MG, Q3W
     Route: 042
     Dates: start: 20150923, end: 20150923
  11. NOVAMIN [Concomitant]
     Indication: ARTHRALGIA
     Dosage: 500 MG, PRN
     Route: 048
  12. PACLITAXEL. [Suspect]
     Active Substance: PACLITAXEL
     Dosage: 280 MG, Q3W
     Route: 042
     Dates: start: 20150902, end: 20150902
  13. AVASTIN [Suspect]
     Active Substance: BEVACIZUMAB
     Dosage: 885 MG, Q3W
     Route: 042
     Dates: start: 20150902
  14. AMLODIPIN [Concomitant]
     Active Substance: AMLODIPINE BESYLATE
     Indication: HYPERTENSION
     Dosage: 5 MG, UNK
     Route: 048
  15. PANTOPRAZOL [Concomitant]
     Active Substance: PANTOPRAZOLE SODIUM
     Indication: PRODUCT USED FOR UNKNOWN INDICATION
     Dosage: 40 MG, UNK
     Route: 048
  16. AVASTIN [Suspect]
     Active Substance: BEVACIZUMAB
     Indication: OVARIAN CANCER
     Dosage: 890 MG, Q3W
     Route: 042
     Dates: start: 20161026
  17. TAVEGIL [Concomitant]
     Active Substance: CLEMASTINE FUMARATE
     Indication: HYPERSENSITIVITY
     Dosage: 2 MG, UNK (ON DAY 1 OF CHEMOTHERAPY)
     Route: 042
  18. PACLITAXEL. [Suspect]
     Active Substance: PACLITAXEL
     Dosage: 275 MG, Q3W
     Route: 042
     Dates: start: 20151104, end: 20151104

REACTIONS (1)
  - Subileus [Recovered/Resolved]

NARRATIVE: CASE EVENT DATE: 20161109
